FAERS Safety Report 8882435 (Version 2)
Quarter: 2013Q2

REPORT INFORMATION
  Report Type: Report from Study
  Country: CN (occurrence: CN)
  Receive Date: 20121102
  Receipt Date: 20130417
  Transmission Date: 20140414
  Serious: Yes (Hospitalization)
  Sender: FDA-Public Use
  Company Number: CN-BAYER-2012-096025

PATIENT
  Age: 54 Year
  Sex: Female
  Weight: 61 kg

DRUGS (15)
  1. REGORAFENIB [Suspect]
     Indication: COLORECTAL CANCER METASTATIC
     Dosage: 160 MG, QD
     Route: 048
     Dates: start: 20120724, end: 20120806
  2. REGORAFENIB [Suspect]
     Indication: COLORECTAL CANCER METASTATIC
     Dosage: 120 MG, QD
     Route: 048
     Dates: start: 20120810, end: 20120813
  3. REGORAFENIB [Suspect]
     Indication: COLORECTAL CANCER METASTATIC
     Dosage: 120 MG, QD
     Route: 048
     Dates: start: 20120821, end: 20120910
  4. ESSENTIALE [VITAMINS NOS] [Concomitant]
     Indication: HEPATIC FUNCTION ABNORMAL
     Dosage: 1368 MG, QD
     Route: 048
     Dates: start: 20120731, end: 20120805
  5. ESSENTIALE [VITAMINS NOS] [Concomitant]
     Indication: HEPATIC FUNCTION ABNORMAL
     Dosage: 1368 MG, QD
     Route: 048
     Dates: start: 20120831, end: 20120904
  6. URSODEOXYCHOLIC ACID [Concomitant]
     Indication: HEPATIC FUNCTION ABNORMAL
     Dosage: 500 MG, QD
     Route: 048
     Dates: start: 20120731, end: 20120805
  7. LEVOFLOXACIN [Concomitant]
     Indication: URINARY TRACT INFECTION
     Dosage: 0.5 G, QD
     Route: 048
     Dates: start: 20120807, end: 20120811
  8. LEVOFLOXACIN [Concomitant]
     Indication: URINARY TRACT INFECTION
     Dosage: 0.5 G, QD
     Route: 048
     Dates: start: 20120817, end: 20120821
  9. STRONG NEO-MINOPHAGEN C [Concomitant]
     Indication: HEPATIC FUNCTION ABNORMAL
     Dosage: 150 MG, QD
     Route: 048
     Dates: start: 20120814, end: 20120830
  10. STRONG NEO-MINOPHAGEN C [Concomitant]
     Indication: HEPATIC FUNCTION ABNORMAL
     Dosage: 150 MG, QD
     Route: 048
     Dates: start: 20120905
  11. TRAMADOL [Concomitant]
     Indication: PAIN
     Dosage: 200 MG, QD
     Route: 048
     Dates: start: 20120817, end: 20120827
  12. OXYCONTIN [Concomitant]
     Indication: PAIN
     Dosage: 20 MG, QD
     Route: 048
     Dates: start: 20120828, end: 20120913
  13. HERBAL PREPARATION [Concomitant]
     Indication: URINARY TRACT INFECTION
     Dosage: 18 G, QD
     Route: 048
     Dates: start: 20120724, end: 20120829
  14. HERBAL PREPARATION [Concomitant]
     Indication: URINARY TRACT INFECTION
     Dosage: 18 G, QD
     Route: 048
     Dates: start: 20121010, end: 20121013
  15. HERBAL PREPARATION [Concomitant]
     Indication: URINARY TRACT INFECTION
     Dosage: DAILY DOSE 12 G
     Route: 048
     Dates: start: 20121012, end: 20121018

REACTIONS (1)
  - Visceral arterial ischaemia [Recovered/Resolved]
